FAERS Safety Report 5512882-0 (Version None)
Quarter: 2007Q4

REPORT INFORMATION
  Report Type: 
  Country: None (occurrence: None)
  Receive Date: 20071108
  Receipt Date: 20071022
  Transmission Date: 20080405
  Serious: Yes (Hospitalization)
  Sender: FDA-Public Use
  Company Number: B0435966A

PATIENT
  Age: 56 Year
  Sex: Male
  Weight: 63.8665 kg

DRUGS (10)
  1. VALTREX [Suspect]
     Indication: HERPES ZOSTER
     Dosage: 1000 MG PER DAY ORAL
     Route: 048
     Dates: start: 20060818, end: 20060819
  2. ALLOPURINOL [Concomitant]
  3. CALCIUM CARBONATE [Concomitant]
  4. FERO-GRADUMET [Concomitant]
  5. CLINIDIPINE [Concomitant]
  6. OLMESARTAN MEDOXOMIL [Concomitant]
  7. ALFACALCIDOL [Concomitant]
  8. SHAKUYAKU-KANZO-TO [Concomitant]
  9. RILMAZAFONE HYDROCHLORIDE [Concomitant]
  10. NIFEDIPINE [Concomitant]

REACTIONS (3)
  - ALTERED STATE OF CONSCIOUSNESS [None]
  - ENCEPHALOPATHY [None]
  - PYREXIA [None]
